FAERS Safety Report 25038607 (Version 4)
Quarter: 2025Q2

REPORT INFORMATION
  Report Type: Spontaneous
  Country: KR (occurrence: KR)
  Receive Date: 20250304
  Receipt Date: 20250510
  Transmission Date: 20250717
  Serious: Yes (Other)
  Sender: NOVO NORDISK
  Company Number: KR-NOVOPROD-1377890

PATIENT
  Age: 4 Decade
  Sex: Male
  Weight: 97.4 kg

DRUGS (2)
  1. WEGOVY [Suspect]
     Active Substance: SEMAGLUTIDE
     Indication: Product used for unknown indication
     Dates: start: 20250206
  2. WEGOVY [Suspect]
     Active Substance: SEMAGLUTIDE
     Dates: start: 20250213, end: 20250218

REACTIONS (3)
  - Sudden hearing loss [Not Recovered/Not Resolved]
  - Dizziness [Not Recovered/Not Resolved]
  - Wrong technique in product usage process [Recovered/Resolved]

NARRATIVE: CASE EVENT DATE: 20250206
